FAERS Safety Report 19814485 (Version 1)
Quarter: 2021Q3

REPORT INFORMATION
  Report Type: Spontaneous
  Country: JP (occurrence: JP)
  Receive Date: 20210910
  Receipt Date: 20210910
  Transmission Date: 20211014
  Serious: Yes (Hospitalization, Other)
  Sender: FDA-Public Use
  Company Number: JP-TEVA-2021-JP-1953333

PATIENT
  Age: 85 Year
  Sex: Male
  Weight: 44 kg

DRUGS (5)
  1. AZILECT [Suspect]
     Active Substance: RASAGILINE MESYLATE
     Indication: PARKINSON^S DISEASE
     Dosage: 1 MILLIGRAM DAILY;
     Route: 048
     Dates: start: 20181004
  2. NEUPRO [Concomitant]
     Active Substance: ROTIGOTINE
     Dates: start: 20170420
  3. CELECOX [Concomitant]
     Active Substance: CELECOXIB
     Dates: start: 20181004
  4. MADOPAR [Concomitant]
     Active Substance: BENSERAZIDE HYDROCHLORIDE\LEVODOPA
     Dates: start: 20150209
  5. AMITIZA [Concomitant]
     Active Substance: LUBIPROSTONE
     Dates: start: 20180705

REACTIONS (2)
  - Altered state of consciousness [Recovered/Resolved]
  - Thalamus haemorrhage [Recovered/Resolved]

NARRATIVE: CASE EVENT DATE: 20181201
